FAERS Safety Report 11755374 (Version 1)
Quarter: 2015Q4

REPORT INFORMATION
  Report Type: Other
  Country: GB (occurrence: GB)
  Receive Date: 20151119
  Receipt Date: 20151119
  Transmission Date: 20160304
  Serious: Yes (Hospitalization, Other)
  Sender: FDA-Public Use
  Company Number: GB-MYLANLABS-2015M1039117

PATIENT

DRUGS (11)
  1. VITAMIN B [Concomitant]
     Active Substance: VITAMIN B
     Dosage: 1 DF, QD
     Dates: start: 20151026
  2. CREON [Concomitant]
     Active Substance: PANCRELIPASE AMYLASE\PANCRELIPASE LIPASE\PANCRELIPASE PROTEASE
     Dosage: 1 DF, QID
     Dates: start: 20151026
  3. NUTRIZYM                           /00014701/ [Concomitant]
     Dosage: WITH EACH MAIN MEAL
     Dates: start: 20151026
  4. TRAMADOL. [Concomitant]
     Active Substance: TRAMADOL
     Dosage: ONE OR TWO UP TO FOUR TIMES DAILY
     Dates: start: 20150701, end: 20150924
  5. THIAMINE. [Concomitant]
     Active Substance: THIAMINE
     Dosage: 1 DF, TID
     Dates: start: 20151026
  6. MESALAZINE [Concomitant]
     Active Substance: MESALAMINE
     Dosage: TWO SACHETS TWICE DAILY
     Dates: start: 20151009, end: 20151010
  7. ORAL REHYDRATION SALTS             /01239601/ [Concomitant]
     Dosage: 1 DF, UNK
     Dates: start: 20150911, end: 20150912
  8. GABAPENTIN. [Suspect]
     Active Substance: GABAPENTIN
     Dosage: UNK
     Dates: start: 20151026
  9. CODEINE PHOSPHATE [Concomitant]
     Active Substance: CODEINE PHOSPHATE
     Dates: start: 20150828, end: 20150911
  10. HYOSCINE BUTYLBROMIDE [Concomitant]
     Active Substance: BUTYLSCOPOLAMINE
     Dosage: 2 DF, QID
     Dates: start: 20150813, end: 20150827
  11. ZOMORPH [Concomitant]
     Active Substance: MORPHINE SULFATE
     Dosage: 2 DF, UNK
     Dates: start: 20150701, end: 20151026

REACTIONS (2)
  - Pancreatic insufficiency [Not Recovered/Not Resolved]
  - Diarrhoea [Recovering/Resolving]

NARRATIVE: CASE EVENT DATE: 20151026
